FAERS Safety Report 18467908 (Version 1)
Quarter: 2020Q4

REPORT INFORMATION
  Report Type: Spontaneous
  Country: US (occurrence: US)
  Receive Date: 20201105
  Receipt Date: 20201105
  Transmission Date: 20210114
  Serious: Yes (Death)
  Sender: FDA-Public Use
  Company Number: US-PFIZER INC-2020422158

PATIENT
  Age: 43 Year
  Sex: Female

DRUGS (19)
  1. VANCOMYCIN HCL [Suspect]
     Active Substance: VANCOMYCIN HYDROCHLORIDE
     Indication: MYOSITIS
  2. PIPERACILLIN/TAZOBACTAM [Suspect]
     Active Substance: PIPERACILLIN SODIUM\TAZOBACTAM SODIUM
     Indication: PNEUMONIA PSEUDOMONAL
  3. ATOVAQUONE. [Suspect]
     Active Substance: ATOVAQUONE
     Indication: PNEUMOCYSTIS JIROVECII PNEUMONIA
     Dosage: UNK
  4. MYCOPHENOLATE MOFETIL. [Concomitant]
     Active Substance: MYCOPHENOLATE MOFETIL
     Indication: MYOSITIS
     Dosage: FULL DOSE
  5. PIPERACILLIN/TAZOBACTAM [Suspect]
     Active Substance: PIPERACILLIN SODIUM\TAZOBACTAM SODIUM
     Indication: PSEUDOMONAS INFECTION
  6. ATOVAQUONE. [Suspect]
     Active Substance: ATOVAQUONE
     Indication: PROPHYLAXIS
  7. HEPARIN [Concomitant]
     Active Substance: HEPARIN SODIUM
     Indication: PULMONARY EMBOLISM
     Dosage: UNK
  8. FLUCONAZOLE. [Suspect]
     Active Substance: FLUCONAZOLE
     Dosage: 100 MG, DAILY
  9. ACYCLOVIR SODIUM. [Suspect]
     Active Substance: ACYCLOVIR SODIUM
     Indication: HERPES SIMPLEX
  10. AMPHOTERICIN B. [Suspect]
     Active Substance: AMPHOTERICIN B
     Indication: EVIDENCE BASED TREATMENT
     Dosage: 3 MG/KG
  11. MYCOPHENOLATE MOFETIL. [Concomitant]
     Active Substance: MYCOPHENOLATE MOFETIL
     Indication: MUSCLE NECROSIS
     Dosage: UNK, REDUCED BY HALF
  12. PREDNISONE. [Concomitant]
     Active Substance: PREDNISONE
     Indication: IMMUNOSUPPRESSION
     Dosage: 5 MG, DAILY
  13. SULFAMETHOXAZOLE/TRIMETHOPRIM [Suspect]
     Active Substance: SULFAMETHOXAZOLE\TRIMETHOPRIM
     Indication: PNEUMOCYSTIS JIROVECII PNEUMONIA
  14. AMPHOTERICIN B. [Suspect]
     Active Substance: AMPHOTERICIN B
     Dosage: 3 MG/KG
     Route: 042
  15. FLUCONAZOLE. [Suspect]
     Active Substance: FLUCONAZOLE
     Indication: CRYPTOCOCCOSIS
     Dosage: 200 MG, DAILY
     Route: 048
  16. MYCOPHENOLATE MOFETIL. [Concomitant]
     Active Substance: MYCOPHENOLATE MOFETIL
     Indication: IMMUNOSUPPRESSION
     Dosage: 1000 MG, 2X/DAY
  17. BELATACEPT [Concomitant]
     Active Substance: BELATACEPT
     Indication: IMMUNOSUPPRESSION
     Dosage: 5 MG/KG (EVERY 4 WEEKS)
  18. VANCOMYCIN HCL [Suspect]
     Active Substance: VANCOMYCIN HYDROCHLORIDE
     Indication: MUSCLE NECROSIS
     Dosage: UNK
     Route: 042
  19. PREDNISONE. [Concomitant]
     Active Substance: PREDNISONE
     Dosage: 10 MG, DAILY

REACTIONS (1)
  - Drug ineffective [Fatal]
